FAERS Safety Report 21768573 (Version 1)
Quarter: 2022Q4

REPORT INFORMATION
  Report Type: Spontaneous
  Country: DZ (occurrence: DZ)
  Receive Date: 20221222
  Receipt Date: 20221222
  Transmission Date: 20230113
  Serious: Yes (Other)
  Sender: FDA-Public Use
  Company Number: DZ-KOREA IPSEN Pharma-2022-34392

PATIENT
  Age: 44 Year
  Sex: Male

DRUGS (4)
  1. LANREOTIDE ACETATE [Suspect]
     Active Substance: LANREOTIDE ACETATE
     Indication: Neuroendocrine tumour
     Dosage: 8 INJECTIONS OF SOMATULINE120 MG EVERY 28 DAYS
     Route: 058
  2. DEVICE [Suspect]
     Active Substance: DEVICE
     Indication: Neuroendocrine tumour
  3. CAPECITABINE [Concomitant]
     Active Substance: CAPECITABINE
  4. TEMOZOLOMIDE [Concomitant]
     Active Substance: TEMOZOLOMIDE

REACTIONS (1)
  - Myocardial infarction [Unknown]
